FAERS Safety Report 14216541 (Version 1)
Quarter: 2017Q4

REPORT INFORMATION
  Report Type: Report from Study
  Country: CA (occurrence: CA)
  Receive Date: 20171122
  Receipt Date: 20171122
  Transmission Date: 20180321
  Serious: Yes (Other)
  Sender: FDA-Public Use
  Company Number: CA-JNJFOC-20171125272

PATIENT
  Age: 33 Year
  Sex: Male
  Weight: 75 kg

DRUGS (1)
  1. STELARA [Suspect]
     Active Substance: USTEKINUMAB
     Indication: CROHN^S DISEASE
     Route: 058
     Dates: start: 20150422

REACTIONS (4)
  - Skin abrasion [Recovering/Resolving]
  - Off label use [Unknown]
  - Product use issue [Unknown]
  - Cellulitis [Recovering/Resolving]

NARRATIVE: CASE EVENT DATE: 20150422
